FAERS Safety Report 5344198-X (Version None)
Quarter: 2007Q2

REPORT INFORMATION
  Report Type: 
  Country: None (occurrence: None)
  Receive Date: 20070604
  Receipt Date: 20070523
  Transmission Date: 20071010
  Serious: Yes (Hospitalization)
  Sender: FDA-Public Use
  Company Number: FR-ROCHE-499603

PATIENT
  Age: 40 Year
  Sex: Female

DRUGS (2)
  1. XENICAL [Suspect]
     Indication: DRUG USE FOR UNKNOWN INDICATION
     Route: 065
  2. LEVONORGESTREL AND ETHINYL ESTRADIOL [Concomitant]
     Indication: CONTRACEPTION
     Route: 048

REACTIONS (4)
  - HAEMANGIOMA OF LIVER [None]
  - HEPATIC ADENOMA [None]
  - PULMONARY EMBOLISM [None]
  - VENA CAVA THROMBOSIS [None]
